FAERS Safety Report 20610866 (Version 1)
Quarter: 2022Q1

REPORT INFORMATION
  Report Type: Spontaneous
  Country: ES (occurrence: ES)
  Receive Date: 20220318
  Receipt Date: 20220318
  Transmission Date: 20220424
  Serious: Yes (Life-Threatening, Hospitalization, Other)
  Sender: FDA-Public Use
  Company Number: None

PATIENT
  Age: 18 Year
  Sex: Female

DRUGS (1)
  1. BELIMUMAB [Suspect]
     Active Substance: BELIMUMAB
     Indication: Nephritis
     Dosage: UNK, (LOADING DOSE 400MG WEEKLY FOR 1 MONTH, MAINTENANCE DOSE 200MG WEEKLY)
     Route: 058
     Dates: start: 20220207

REACTIONS (2)
  - Lymphopenia [Unknown]
  - Neutropenia [Unknown]

NARRATIVE: CASE EVENT DATE: 20220304
